FAERS Safety Report 12482517 (Version 1)
Quarter: 2016Q2

REPORT INFORMATION
  Report Type: Spontaneous
  Country: JP (occurrence: JP)
  Receive Date: 20160620
  Receipt Date: 20160620
  Transmission Date: 20160815
  Serious: Yes (Death, Hospitalization)
  Sender: FDA-Public Use
  Company Number: JP-IPCA LABORATORIES LIMITED-IPC201606-000507

PATIENT
  Age: 73 Year
  Sex: Male
  Weight: 61.2 kg

DRUGS (1)
  1. WARFARIN [Suspect]
     Active Substance: WARFARIN

REACTIONS (7)
  - Retroperitoneal haematoma [Fatal]
  - Disseminated intravascular coagulation [Unknown]
  - International normalised ratio increased [Unknown]
  - Respiratory failure [Unknown]
  - Abdominal compartment syndrome [Unknown]
  - Anaemia [Unknown]
  - Back pain [Unknown]
